FAERS Safety Report 7914898-3 (Version None)
Quarter: 2011Q4

REPORT INFORMATION
  Report Type: 
  Country: None (occurrence: None)
  Receive Date: 20111115
  Receipt Date: 20111103
  Transmission Date: 20120403
  Serious: Yes (Other)
  Sender: FDA-Public Use
  Company Number: US-ROCHE-1010908

PATIENT
  Sex: Female
  Weight: 52.21 kg

DRUGS (3)
  1. XELODA [Suspect]
     Indication: BREAST CANCER METASTATIC
     Route: 048
     Dates: start: 20110930, end: 20111013
  2. VITAMIN TAB [Concomitant]
  3. LIPITOR [Concomitant]

REACTIONS (9)
  - NAUSEA [None]
  - WEIGHT DECREASED [None]
  - EAR DISCOMFORT [None]
  - VOMITING [None]
  - ASTHENIA [None]
  - DYSPNOEA [None]
  - LIP EXFOLIATION [None]
  - VISION BLURRED [None]
  - SKIN EXFOLIATION [None]
